FAERS Safety Report 24595837 (Version 1)
Quarter: 2024Q4

REPORT INFORMATION
  Report Type: Spontaneous
  Country: US (occurrence: US)
  Receive Date: 20241109
  Receipt Date: 20241109
  Transmission Date: 20250115
  Serious: No
  Sender: ABBVIE
  Company Number: US-ABBVIE-5986256

PATIENT

DRUGS (1)
  1. CREON [Suspect]
     Active Substance: PANCRELIPASE AMYLASE\PANCRELIPASE LIPASE\PANCRELIPASE PROTEASE
     Indication: Incontinence
     Dosage: CREON 36000 USP
     Route: 048
     Dates: start: 202408

REACTIONS (23)
  - Left atrial enlargement [Unknown]
  - Frequent bowel movements [Unknown]
  - Hypotension [Unknown]
  - Balance disorder [Recovered/Resolved]
  - Syncope [Recovered/Resolved]
  - Dizziness [Not Recovered/Not Resolved]
  - Chest pain [Recovered/Resolved]
  - Headache [Not Recovered/Not Resolved]
  - Dyspnoea [Not Recovered/Not Resolved]
  - Dry skin [Unknown]
  - Chapped lips [Unknown]
  - Flatulence [Unknown]
  - Asthenia [Unknown]
  - Weight decreased [Unknown]
  - Nervousness [Unknown]
  - Gastrointestinal disorder [Unknown]
  - Sitting disability [Unknown]
  - Palpitations [Recovering/Resolving]
  - Mean platelet volume decreased [Unknown]
  - Eosinophil count decreased [Unknown]
  - Carbon dioxide decreased [Unknown]
  - Anion gap increased [Unknown]
  - Blood pressure abnormal [Unknown]

NARRATIVE: CASE EVENT DATE: 20240101
